FAERS Safety Report 10236728 (Version 1)
Quarter: 2014Q2

REPORT INFORMATION
  Report Type: Report from Study
  Country: MX (occurrence: MX)
  Receive Date: 20140613
  Receipt Date: 20140613
  Transmission Date: 20141212
  Serious: Yes (Other)
  Sender: FDA-Public Use
  Company Number: MX-GLAXOSMITHKLINE-A1076635A

PATIENT
  Sex: Male

DRUGS (1)
  1. COMBODART [Suspect]
     Indication: PRODUCT USED FOR UNKNOWN INDICATION
     Route: 048

REACTIONS (2)
  - Surgery [Unknown]
  - Drug ineffective [Unknown]
